FAERS Safety Report 9514268 (Version 2)
Quarter: 2013Q4

REPORT INFORMATION
  Report Type: Spontaneous
  Country: US (occurrence: US)
  Receive Date: 20130910
  Receipt Date: 20131003
  Transmission Date: 20140711
  Serious: Yes (Death)
  Sender: FDA-Public Use
  Company Number: US-ROCHE-1273411

PATIENT
  Age: 78 Year
  Sex: Male
  Weight: 87.17 kg

DRUGS (1)
  1. XELODA [Suspect]
     Indication: COLON CANCER
     Dosage: 2 WEEKS ON AND 7 DAYS OFF
     Route: 048

REACTIONS (3)
  - Disease progression [Fatal]
  - Colon cancer metastatic [Fatal]
  - Metastases to liver [Fatal]
